FAERS Safety Report 10729773 (Version 3)
Quarter: 2015Q1

REPORT INFORMATION
  Report Type: Spontaneous
  Country: JP (occurrence: JP)
  Receive Date: 20150122
  Receipt Date: 20150317
  Transmission Date: 20150721
  Serious: Yes (Life-Threatening)
  Sender: FDA-Public Use
  Company Number: JP-CELGENE-JPN-2015012537

PATIENT
  Age: 76 Year
  Sex: Male

DRUGS (2)
  1. LENADEX [Suspect]
     Active Substance: DEXAMETHASONE ACETATE
     Indication: PLASMA CELL MYELOMA RECURRENT
     Route: 048
     Dates: start: 20140521, end: 201411
  2. REVLIMID [Suspect]
     Active Substance: LENALIDOMIDE
     Indication: PLASMA CELL MYELOMA RECURRENT
     Dosage: 15 MILLIGRAM
     Route: 048
     Dates: start: 20140521

REACTIONS (1)
  - Lung squamous cell carcinoma stage IV [Not Recovered/Not Resolved]

NARRATIVE: CASE EVENT DATE: 201412
